FAERS Safety Report 5311076-1 (Version None)
Quarter: 2007Q2

REPORT INFORMATION
  Report Type: 
  Country: None (occurrence: None)
  Receive Date: 20070430
  Receipt Date: 20070426
  Transmission Date: 20071010
  Serious: Yes (Hospitalization)
  Sender: FDA-Public Use
  Company Number: US-BRISTOL-MYERS SQUIBB COMPANY-13690466

PATIENT
  Age: 76 Year
  Sex: Female
  Weight: 77 kg

DRUGS (7)
  1. CETUXIMAB [Suspect]
     Indication: PANCREATIC CARCINOMA
     Route: 042
     Dates: start: 20070219
  2. GEMCITABINE HCL [Suspect]
     Indication: PANCREATIC CARCINOMA
     Route: 042
     Dates: start: 20070219
  3. OXALIPLATIN [Suspect]
     Indication: PANCREATIC CARCINOMA
     Route: 042
     Dates: start: 20070219
  4. NORVASC [Concomitant]
  5. PRAVASTATIN SODIUM [Concomitant]
  6. FOSAMAX [Concomitant]
  7. FIORINAL [Concomitant]

REACTIONS (1)
  - CEREBRAL ISCHAEMIA [None]
